FAERS Safety Report 22592691 (Version 1)
Quarter: 2023Q2

REPORT INFORMATION
  Report Type: Spontaneous
  Country: US (occurrence: US)
  Receive Date: 20230613
  Receipt Date: 20230613
  Transmission Date: 20230721
  Serious: No
  Sender: FDA-Public Use
  Company Number: US-GLAXOSMITHKLINE-USCH2023AMR027769

PATIENT

DRUGS (2)
  1. ADVIL [Suspect]
     Active Substance: IBUPROFEN
     Indication: Back pain
     Dosage: 8 DF, QD (3 CAPSULES MID-MORNING, 3 CAPSULES 8 HOURS LATER)
     Dates: start: 202306
  2. LITHIUM CARBONATE [Suspect]
     Active Substance: LITHIUM CARBONATE
     Indication: Product used for unknown indication
     Dosage: 300 MG

REACTIONS (3)
  - Stress [Unknown]
  - Poor quality sleep [Unknown]
  - Extra dose administered [Unknown]
